FAERS Safety Report 25593651 (Version 7)
Quarter: 2025Q3

REPORT INFORMATION
  Report Type: Spontaneous
  Country: US (occurrence: US)
  Receive Date: 20250722
  Receipt Date: 20250910
  Transmission Date: 20251020
  Serious: Yes (Disabling, Other)
  Sender: AMGEN
  Company Number: US-AMGEN-USASP2025143722

PATIENT
  Age: 65 Year
  Sex: Male
  Weight: 101 kg

DRUGS (15)
  1. TEPEZZA [Suspect]
     Active Substance: TEPROTUMUMAB-TRBW
     Indication: Graves^ disease
     Route: 040
     Dates: start: 2020, end: 2021
  2. TEPEZZA [Suspect]
     Active Substance: TEPROTUMUMAB-TRBW
     Indication: Endocrine ophthalmopathy
  3. ZOCOR [Concomitant]
     Active Substance: SIMVASTATIN
     Dosage: 20 MILLIGRAM, QD
     Route: 048
     Dates: start: 20240424
  4. SYNTHROID [Concomitant]
     Active Substance: LEVOTHYROXINE SODIUM
     Dosage: 100 MICROGRAM, QD
     Route: 048
     Dates: start: 20240619
  5. LEXAPRO [Concomitant]
     Active Substance: ESCITALOPRAM OXALATE
     Dosage: 10 MILLIGRAM, QD
     Route: 048
     Dates: start: 20241025, end: 20250427
  6. LEXAPRO [Concomitant]
     Active Substance: ESCITALOPRAM OXALATE
     Dosage: 10 MILLIGRAM, QD
     Route: 048
     Dates: start: 20250427, end: 20250427
  7. TOPROL XL [Concomitant]
     Active Substance: METOPROLOL SUCCINATE
     Dosage: 50 MILLIGRAM, QD
     Route: 048
     Dates: start: 20241209
  8. LEVOTHYROXINE [Concomitant]
     Active Substance: LEVOTHYROXINE
     Dosage: 125 MICROGRAM, QD
     Route: 048
     Dates: start: 20241220
  9. COZAAR [Concomitant]
     Active Substance: LOSARTAN POTASSIUM
     Dosage: 100 MILLIGRAM, QD
     Route: 048
     Dates: start: 20250131
  10. KLONOPIN [Concomitant]
     Active Substance: CLONAZEPAM
     Dosage: 0.5 MILLIGRAM, BID
     Route: 048
     Dates: start: 20250203
  11. CIPRODEX [Concomitant]
     Active Substance: CIPROFLOXACIN HYDROCHLORIDE\DEXAMETHASONE
     Dosage: UNK UNK, BID, 4.5 DROPS INTO BOTH EARS
     Route: 001
     Dates: start: 20250331
  12. CORTISPORIN [Concomitant]
     Active Substance: BACITRACIN ZINC\HYDROCORTISONE\NEOMYCIN SULFATE\POLYMYXIN B SULFATE
     Dosage: UNK UNK, QID
     Route: 001
  13. MODERNA COVID-19 VACCINE [Concomitant]
     Active Substance: ELASOMERAN
     Route: 065
     Dates: start: 20210320
  14. INFLUENZA VIRUS VACCINE [Concomitant]
     Active Substance: INFLUENZA VIRUS VACCINE
     Route: 065
     Dates: start: 20171003
  15. CAFFEINE [Concomitant]
     Active Substance: CAFFEINE
     Route: 065

REACTIONS (28)
  - Mixed deafness [Not Recovered/Not Resolved]
  - Endocrine ophthalmopathy [Unknown]
  - Graves^ disease [Unknown]
  - Hypothyroidism [Unknown]
  - Syncope [Unknown]
  - Arteriosclerosis coronary artery [Unknown]
  - Pain [Unknown]
  - Emotional distress [Unknown]
  - Anxiety [Unknown]
  - Impaired quality of life [Unknown]
  - Product use complaint [Unknown]
  - Tinnitus [Not Recovered/Not Resolved]
  - Therapy non-responder [Unknown]
  - Unevaluable event [Unknown]
  - Ear pain [Unknown]
  - Ear canal stenosis [Unknown]
  - Colorectal adenoma [Unknown]
  - Retroperitoneal lymphadenopathy [Unknown]
  - Otitis externa [Recovering/Resolving]
  - Hepatic lesion [Unknown]
  - Melanocytic naevus [Unknown]
  - Back pain [Unknown]
  - Musculoskeletal chest pain [Unknown]
  - Haemorrhoids [Unknown]
  - Rhinorrhoea [Unknown]
  - Ear infection [Unknown]
  - Fatigue [Unknown]
  - Eustachian tube dysfunction [Unknown]

NARRATIVE: CASE EVENT DATE: 20220101
